FAERS Safety Report 23326685 (Version 1)
Quarter: 2023Q4

REPORT INFORMATION
  Report Type: Spontaneous
  Country: US (occurrence: None)
  Receive Date: 20231220
  Receipt Date: 20231220
  Transmission Date: 20240110
  Serious: Yes (Life-Threatening, Other)
  Sender: FDA-Public Use
  Company Number: None

PATIENT
  Age: 54 Year
  Sex: Male
  Weight: 125 kg

DRUGS (6)
  1. LOKELMA [Suspect]
     Active Substance: SODIUM ZIRCONIUM CYCLOSILICATE
     Indication: Blood potassium abnormal
     Dosage: OTHER QUANTITY : 1 PACKET;?FREQUENCY : EVERY OTHER DAY;?
     Route: 048
     Dates: start: 20231216, end: 20231218
  2. VELPHORO [Concomitant]
     Active Substance: SUCROFERRIC OXYHYDROXIDE
  3. Caravedilol [Concomitant]
  4. VITAMIN D [Concomitant]
     Active Substance: VITAMIN D NOS
  5. VITAMIN C [Concomitant]
     Active Substance: ASCORBIC ACID
  6. VITAMIN B1 [Concomitant]
     Active Substance: THIAMINE HYDROCHLORIDE

REACTIONS (3)
  - Respiratory disorder [None]
  - Total lung capacity decreased [None]
  - Dialysis [None]

NARRATIVE: CASE EVENT DATE: 20231218
